FAERS Safety Report 7530352-5 (Version None)
Quarter: 2011Q2

REPORT INFORMATION
  Report Type: 
  Country: None (occurrence: None)
  Receive Date: 20110607
  Receipt Date: 20110524
  Transmission Date: 20111010
  Serious: Yes (Other)
  Sender: FDA-Public Use
  Company Number: JP-UCBSA-033846

PATIENT
  Sex: Female

DRUGS (7)
  1. HYDANTOL [Concomitant]
     Route: 048
  2. ONON [Concomitant]
     Route: 048
  3. PHENYTOIN [Concomitant]
  4. PROGRAF [Concomitant]
  5. KEPPRA [Suspect]
     Indication: EPILEPSY
     Route: 048
     Dates: start: 20110420, end: 20110101
  6. MINOCYCLINE HCL [Concomitant]
  7. PHENOBAL [Concomitant]

REACTIONS (1)
  - STATUS EPILEPTICUS [None]
